FAERS Safety Report 6774750-6 (Version None)
Quarter: 2010Q2

REPORT INFORMATION
  Report Type: 
  Country: None (occurrence: None)
  Receive Date: 20100617
  Receipt Date: 20100609
  Transmission Date: 20101027
  Serious: Yes (Death)
  Sender: FDA-Public Use
  Company Number: FR-ROCHE-708751

PATIENT
  Sex: Female

DRUGS (2)
  1. AVASTIN [Suspect]
     Indication: BREAST CANCER
     Dosage: FREQUENCY: AS PER THE CYCLE
     Route: 042
     Dates: start: 20090921, end: 20091120
  2. PACLITAXEL [Concomitant]
     Indication: BREAST CANCER
     Dosage: CHEMOTHERAPY, THERAPY RECEIVED AS PER THE CYCLE
     Dates: start: 20090921, end: 20091204

REACTIONS (2)
  - HAEMOPTYSIS [None]
  - NECROSIS [None]
